FAERS Safety Report 19315778 (Version 1)
Quarter: 2021Q2

REPORT INFORMATION
  Report Type: Spontaneous
  Country: DE (occurrence: DE)
  Receive Date: 20210527
  Receipt Date: 20210527
  Transmission Date: 20210717
  Serious: Yes (Congenital Anomaly, Other)
  Sender: FDA-Public Use
  Company Number: DE-PFIZER INC-2021552396

PATIENT
  Sex: Female

DRUGS (6)
  1. AMOXICILLIN. [Concomitant]
     Active Substance: AMOXICILLIN
     Indication: URINARY TRACT INFECTION
     Dosage: UNK
     Route: 064
  2. MIRTAZAPIN [Concomitant]
     Active Substance: MIRTAZAPINE
     Indication: DEPRESSION
     Dosage: 15 MG/D VIA FATHER
     Dates: start: 20190608, end: 20200229
  3. VENLAFAXINE HCL [Suspect]
     Active Substance: VENLAFAXINE HYDROCHLORIDE
     Indication: DEPRESSION
     Dosage: UNK (0 ? 37 GESTATIONAL WEEK)
     Route: 064
     Dates: start: 20190608, end: 20200222
  4. AMOXICILLIN. [Concomitant]
     Active Substance: AMOXICILLIN
     Indication: PAROTITIS
     Dosage: UNK
     Route: 064
  5. PANTOPRAZOLE [PANTOPRAZOLE SODIUM SESQUIHYDRATE] [Concomitant]
     Active Substance: PANTOPRAZOLE SODIUM
     Indication: GASTRITIS PROPHYLAXIS
     Dosage: UNK VIA FATHER
     Dates: start: 20190608, end: 20200229
  6. ESCITALOPRAM [Concomitant]
     Active Substance: ESCITALOPRAM OXALATE
     Indication: DEPRESSION
     Dosage: 15 MG, DAILY VIA FATHER
     Dates: start: 20190608, end: 20200229

REACTIONS (7)
  - Neck deformity [Unknown]
  - Congenital melanocytic naevus [Unknown]
  - Maternal exposure during pregnancy [Unknown]
  - Talipes [Unknown]
  - Hypotonia neonatal [Unknown]
  - Retrognathia [Unknown]
  - Respiratory disorder neonatal [Recovered/Resolved]

NARRATIVE: CASE EVENT DATE: 20200229
